FAERS Safety Report 10282997 (Version 2)
Quarter: 2014Q3

REPORT INFORMATION
  Report Type: Spontaneous
  Country: US (occurrence: US)
  Receive Date: 20140708
  Receipt Date: 20140725
  Transmission Date: 20150326
  Serious: Yes (Hospitalization, Disabling)
  Sender: FDA-Public Use
  Company Number: US-ROCHE-1431191

PATIENT
  Sex: Female
  Weight: 60.84 kg

DRUGS (10)
  1. PREVACID [Concomitant]
     Active Substance: LANSOPRAZOLE
  2. OMEPRAZOLE. [Concomitant]
     Active Substance: OMEPRAZOLE
  3. RITUXAN [Suspect]
     Active Substance: RITUXIMAB
     Dosage: CYCLE 2
     Route: 042
     Dates: start: 20140327
  4. HYDROCET [Concomitant]
  5. IBRUTINIB [Concomitant]
     Active Substance: IBRUTINIB
     Route: 065
  6. LIPITOR [Concomitant]
     Active Substance: ATORVASTATIN CALCIUM
  7. RITUXAN [Suspect]
     Active Substance: RITUXIMAB
     Indication: CHRONIC LYMPHOCYTIC LEUKAEMIA
     Dosage: CYCLE 3
     Route: 042
  8. TYLENOL [Concomitant]
     Active Substance: ACETAMINOPHEN
  9. ZOVIRAX [Concomitant]
     Active Substance: ACYCLOVIR
  10. BENADRYL [Concomitant]
     Active Substance: DIPHENHYDRAMINE HYDROCHLORIDE

REACTIONS (7)
  - Confusional state [Unknown]
  - Fatigue [Unknown]
  - Tremor [Unknown]
  - Hemiparesis [Unknown]
  - Progressive multifocal leukoencephalopathy [Unknown]
  - Muscle spasms [Unknown]
  - Nasal congestion [Unknown]
